FAERS Safety Report 11501778 (Version 4)
Quarter: 2015Q4

REPORT INFORMATION
  Report Type: Report from Study
  Country: US (occurrence: US)
  Receive Date: 20150914
  Receipt Date: 20151203
  Transmission Date: 20160304
  Serious: Yes (Hospitalization, Other)
  Sender: FDA-Public Use
  Company Number: US-AMGEN-USASP2015092721

PATIENT
  Age: 68 Year
  Sex: Male

DRUGS (7)
  1. NPLATE [Suspect]
     Active Substance: ROMIPLOSTIM
     Indication: IMMUNE THROMBOCYTOPENIC PURPURA
     Dosage: 425 MUG, QWK
     Route: 065
     Dates: start: 20111031
  2. RITUXAN [Concomitant]
     Active Substance: RITUXIMAB
  3. NEURONTIN [Concomitant]
     Active Substance: GABAPENTIN
     Dosage: 600 MG, QD
  4. PREDNISONE. [Suspect]
     Active Substance: PREDNISONE
     Indication: IMMUNE THROMBOCYTOPENIC PURPURA
     Dosage: 60 MG, QD
     Route: 065
     Dates: end: 20150904
  5. MELATONIN [Concomitant]
     Active Substance: MELATONIN
     Dosage: 10 MG IN AM AND 20 MG AT PM, BID
  6. FOSAMAX [Concomitant]
     Active Substance: ALENDRONATE SODIUM
     Dosage: UNK UNK, QWK
  7. PROMACTA [Concomitant]
     Active Substance: ELTROMBOPAG OLAMINE

REACTIONS (13)
  - Squamous cell carcinoma of skin [Unknown]
  - Gastrointestinal haemorrhage [Unknown]
  - Haematochezia [Unknown]
  - Drug effect variable [Unknown]
  - Pneumothorax [Unknown]
  - Adverse drug reaction [Unknown]
  - Pallor [Unknown]
  - Platelet count abnormal [Recovered/Resolved]
  - Device leakage [Unknown]
  - Functional gastrointestinal disorder [Unknown]
  - Skin atrophy [Unknown]
  - Bronchopulmonary aspergillosis [Unknown]
  - Coronary artery bypass [Unknown]

NARRATIVE: CASE EVENT DATE: 2012
